FAERS Safety Report 7406052-9 (Version None)
Quarter: 2011Q2

REPORT INFORMATION
  Report Type: 
  Country: None (occurrence: None)
  Receive Date: 20110411
  Receipt Date: 20110401
  Transmission Date: 20111010
  Serious: Yes (Other)
  Sender: FDA-Public Use
  Company Number: B0700804A

PATIENT
  Age: 15 Year
  Sex: Male

DRUGS (1)
  1. LAMOTRIGINE [Suspect]
     Route: 048

REACTIONS (6)
  - HEPATIC FUNCTION ABNORMAL [None]
  - LYMPHOCYTE STIMULATION TEST POSITIVE [None]
  - LYMPHADENOPATHY [None]
  - PYREXIA [None]
  - ERYTHEMA [None]
  - DRUG RASH WITH EOSINOPHILIA AND SYSTEMIC SYMPTOMS [None]
